FAERS Safety Report 13189016 (Version 1)
Quarter: 2017Q1

REPORT INFORMATION
  Report Type: Spontaneous
  Country: US (occurrence: US)
  Receive Date: 20170203
  Receipt Date: 20170203
  Transmission Date: 20170428
  Serious: No
  Sender: FDA-Public Use
  Company Number: None

PATIENT
  Age: 58 Year
  Sex: Female
  Weight: 71.1 kg

DRUGS (1)
  1. PREDNISONE. [Suspect]
     Active Substance: PREDNISONE
     Indication: ASTHMA
     Dosage: ?          QUANTITY:20 TABLET(S);OTHER FREQUENCY:VARY DOSE  PER DR;?
     Route: 048
     Dates: start: 20170125

REACTIONS (3)
  - Panic attack [None]
  - Product substitution issue [None]
  - Heart rate irregular [None]

NARRATIVE: CASE EVENT DATE: 20170130
